FAERS Safety Report 9314440 (Version 2)
Quarter: 2013Q2

REPORT INFORMATION
  Report Type: Spontaneous
  Country: US (occurrence: US)
  Receive Date: 20130529
  Receipt Date: 20130624
  Transmission Date: 20140414
  Serious: No
  Sender: FDA-Public Use
  Company Number: US-PFIZER INC-2013162259

PATIENT
  Age: 70 Year
  Sex: Female

DRUGS (6)
  1. INLYTA [Suspect]
     Indication: RENAL CANCER
     Dosage: 5 MG, 2X/DAY
     Route: 048
     Dates: start: 20130424
  2. METFORMIN [Concomitant]
     Dosage: UNK
  3. ATORVASTATIN [Concomitant]
     Dosage: UNK
  4. ALBUTEROL MDI [Concomitant]
     Dosage: UNK
  5. ROBITUSSIN AC [Concomitant]
     Dosage: UNK
  6. LORTAB [Concomitant]
     Dosage: UNK

REACTIONS (1)
  - Dysphonia [Recovering/Resolving]
